FAERS Safety Report 11423542 (Version 1)
Quarter: 2015Q3

REPORT INFORMATION
  Report Type: Spontaneous
  Country: US (occurrence: US)
  Receive Date: 20150827
  Receipt Date: 20150827
  Transmission Date: 20151125
  Serious: No
  Sender: FDA-Public Use
  Company Number: US-JNJFOC-20150104725

PATIENT
  Age: 17 Year
  Sex: Female
  Weight: 68.04 kg

DRUGS (2)
  1. MOTRIN IB [Suspect]
     Active Substance: IBUPROFEN
     Indication: NASOPHARYNGITIS
     Dosage: EVERY 6-8 HOURS
     Route: 048
     Dates: start: 20150105, end: 20150106
  2. MOTRIN IB [Suspect]
     Active Substance: IBUPROFEN
     Indication: INFLUENZA
     Dosage: EVERY 6-8 HOURS
     Route: 048
     Dates: start: 20150105, end: 20150106

REACTIONS (1)
  - Product use issue [Unknown]

NARRATIVE: CASE EVENT DATE: 20150105
